FAERS Safety Report 4408343-2 (Version None)
Quarter: 2004Q3

REPORT INFORMATION
  Report Type: 
  Country: None (occurrence: None)
  Receive Date: 20040722
  Receipt Date: 20040712
  Transmission Date: 20050211
  Serious: Yes (Hospitalization)
  Sender: FDA-Public Use
  Company Number: 2004041539

PATIENT
  Sex: Male

DRUGS (1)
  1. NEURONTIN [Suspect]
     Indication: NEUROPATHIC PAIN
     Dosage: 600 MG, (300 MG, 2 IN 1 D), ORAL
     Route: 048
     Dates: start: 20040101, end: 20040301

REACTIONS (5)
  - BLOOD INSULIN DECREASED [None]
  - HAEMORRHAGE [None]
  - PANCREAS TRANSPLANT [None]
  - POST PROCEDURAL COMPLICATION [None]
  - URINE AMYLASE [None]
